FAERS Safety Report 5837754-3 (Version None)
Quarter: 2008Q3

REPORT INFORMATION
  Report Type: 
  Country: None (occurrence: None)
  Receive Date: 20080807
  Receipt Date: 20080730
  Transmission Date: 20090109
  Serious: Yes (Other)
  Sender: FDA-Public Use
  Company Number: NO-ABBOTT-08P-122-0433662-00

PATIENT
  Sex: Female

DRUGS (4)
  1. HUMIRA [Suspect]
     Indication: DRUG USE FOR UNKNOWN INDICATION
     Dates: start: 20040101, end: 20071022
  2. CALCIUM [Concomitant]
     Indication: DRUG USE FOR UNKNOWN INDICATION
  3. PREDNISOLONE [Concomitant]
     Indication: DRUG USE FOR UNKNOWN INDICATION
  4. TERFENADINE [Concomitant]
     Indication: PRURITUS

REACTIONS (1)
  - PRURITUS [None]
